FAERS Safety Report 7046860-X (Version None)
Quarter: 2010Q4

REPORT INFORMATION
  Report Type: 
  Country: None (occurrence: None)
  Receive Date: 20101015
  Receipt Date: 20101006
  Transmission Date: 20110411
  Serious: Yes (Hospitalization)
  Sender: FDA-Public Use
  Company Number: FR-EISAI INC.-E3810-04144-SPO-FR

PATIENT
  Sex: Female

DRUGS (8)
  1. PARIET (RABEPRAZOLE) [Suspect]
     Route: 048
     Dates: start: 20100804, end: 20100923
  2. NABUMETONE [Suspect]
     Route: 048
     Dates: start: 20100917, end: 20100923
  3. NABUMETONE [Suspect]
     Route: 048
     Dates: start: 20100804, end: 20100917
  4. BISOPROLOL FUMARATE [Concomitant]
  5. ALDACTAZINE [Concomitant]
  6. PROZAC [Concomitant]
  7. DUSPATALIN [Concomitant]
  8. FENOFIBRATE [Concomitant]

REACTIONS (9)
  - CONJUNCTIVITIS [None]
  - DYSPHAGIA [None]
  - EYE BURNS [None]
  - LIP OEDEMA [None]
  - MUCOSAL EROSION [None]
  - ORAL PAIN [None]
  - PRURITUS [None]
  - RASH MACULO-PAPULAR [None]
  - VULVAR EROSION [None]
